FAERS Safety Report 7817955-5 (Version None)
Quarter: 2011Q4

REPORT INFORMATION
  Report Type: 
  Country: None (occurrence: None)
  Receive Date: 20111017
  Receipt Date: 20110902
  Transmission Date: 20120403
  Serious: Yes (Other)
  Sender: FDA-Public Use
  Company Number: JP-GLAXOSMITHKLINE-B0745013A

PATIENT
  Sex: Female

DRUGS (3)
  1. PREDNISOLONE [Concomitant]
     Dosage: 12IUAX PER DAY
     Route: 048
     Dates: start: 20110501
  2. ALKERAN [Suspect]
     Indication: MULTIPLE MYELOMA
     Dosage: 5IUAX PER DAY
     Route: 048
     Dates: start: 20110501
  3. LENDORMIN [Concomitant]
     Dosage: .25MG PER DAY
     Route: 048
     Dates: start: 20110501

REACTIONS (5)
  - CONSTIPATION [None]
  - DECREASED APPETITE [None]
  - LIVER FUNCTION TEST ABNORMAL [None]
  - PYREXIA [None]
  - ABDOMINAL DISTENSION [None]
